FAERS Safety Report 7002184-8 (Version None)
Quarter: 2010Q3

REPORT INFORMATION
  Report Type: 
  Country: None (occurrence: None)
  Receive Date: 20100920
  Receipt Date: 20100908
  Transmission Date: 20110219
  Serious: Yes (Hospitalization)
  Sender: FDA-Public Use
  Company Number: GB-PFIZER INC-2010113829

PATIENT
  Age: 60 Year
  Sex: Male
  Weight: 99 kg

DRUGS (5)
  1. SUNITINIB MALATE [Suspect]
     Indication: RENAL CANCER METASTATIC
     Dosage: 50 MG, UNK
     Route: 048
     Dates: start: 20100422
  2. ATENOLOL [Concomitant]
  3. CITALOPRAM [Concomitant]
  4. DOXAZOSIN [Concomitant]
  5. LISINOPRIL [Concomitant]

REACTIONS (3)
  - HEADACHE [None]
  - PITUITARY HAEMORRHAGE [None]
  - VISUAL IMPAIRMENT [None]
